FAERS Safety Report 10381022 (Version 1)
Quarter: 2014Q3

REPORT INFORMATION
  Report Type: Spontaneous
  Country: US (occurrence: None)
  Receive Date: 20140808
  Receipt Date: 20140808
  Transmission Date: 20150326
  Serious: Yes (Hospitalization)
  Sender: FDA-Public Use
  Company Number: VAL_03277_2014

PATIENT
  Age: 8 Year
  Sex: Male

DRUGS (5)
  1. CARBAMAZEPINE. [Concomitant]
     Active Substance: CARBAMAZEPINE
  2. LOSARTAN [Concomitant]
     Active Substance: LOSARTAN
  3. CALCITRIOL. [Suspect]
     Active Substance: CALCITRIOL
     Indication: PRODUCT USED FOR UNKNOWN INDICATION
  4. SETLERS TUMS [Concomitant]
  5. LAMICTAL [Concomitant]
     Active Substance: LAMOTRIGINE

REACTIONS (4)
  - Renal cyst [None]
  - Hypocalcaemia [None]
  - Seizure like phenomena [None]
  - Blood urea increased [None]

NARRATIVE: CASE EVENT DATE: 201101
